FAERS Safety Report 6633920-8 (Version None)
Quarter: 2010Q1

REPORT INFORMATION
  Report Type: 
  Country: None (occurrence: None)
  Receive Date: 20100309
  Receipt Date: 20100225
  Transmission Date: 20100710
  Serious: Yes (Life-Threatening, Hospitalization)
  Sender: FDA-Public Use
  Company Number: 2006-01905

PATIENT
  Age: 61 Year
  Sex: Male
  Weight: 83 kg

DRUGS (7)
  1. VELCADE [Suspect]
     Indication: T-CELL LYMPHOMA
     Dosage: 3.00 MG, INTRAVENOUS
     Route: 042
     Dates: start: 20060623, end: 20060717
  2. PREDNISONE [Suspect]
     Indication: T-CELL LYMPHOMA
     Dosage: 120.00 MG, INTRAVENOUS
     Route: 042
     Dates: start: 20060623, end: 20060717
  3. CYCLOPHOSPHAMIDE [Suspect]
     Indication: T-CELL LYMPHOMA
     Dosage: 2400.00 MG, INTRAVENOUS
     Route: 042
     Dates: start: 20060223, end: 20060623
  4. DOXIL [Suspect]
     Indication: T-CELL LYMPHOMA
     Dosage: 150.00 MG, INTRAVENOUS
     Route: 042
     Dates: start: 20060623, end: 20060713
  5. ELDISINE [Suspect]
     Indication: T-CELL LYMPHOMA
     Dosage: 400.00 MG, INTRAVENOUS
     Route: 042
     Dates: start: 20060623, end: 20060717
  6. BLEOMYCIN SULFATE [Suspect]
     Indication: T-CELL LYMPHOMA
     Dosage: 10.00 LU, INTRAVENOUS
     Route: 042
     Dates: start: 20060623, end: 20060717
  7. GRANOCYTE 13-34 (LENOGRASTIM) INJECTION [Suspect]
     Indication: T-CELL LYMPHOMA
     Dosage: 33.69 MIU, SUBCUTANEOUS
     Route: 058
     Dates: start: 20060623, end: 20060723

REACTIONS (5)
  - DEVICE RELATED INFECTION [None]
  - HYPONATRAEMIA [None]
  - PATHOGEN RESISTANCE [None]
  - PSEUDOMONAL SEPSIS [None]
  - TREATMENT FAILURE [None]
